FAERS Safety Report 15835287 (Version 2)
Quarter: 2019Q1

REPORT INFORMATION
  Report Type: Spontaneous
  Country: JP (occurrence: JP)
  Receive Date: 20190116
  Receipt Date: 20190227
  Transmission Date: 20190417
  Serious: Yes (Hospitalization)
  Sender: FDA-Public Use
  Company Number: JP-ELI_LILLY_AND_COMPANY-JP201812001521

PATIENT
  Age: 34 Year
  Sex: Female
  Weight: 54 kg

DRUGS (2)
  1. TALTZ [Suspect]
     Active Substance: IXEKIZUMAB
     Dosage: 80 MG, OTHER
     Route: 058
     Dates: start: 20180815, end: 20181121
  2. TALTZ [Suspect]
     Active Substance: IXEKIZUMAB
     Indication: PSORIASIS
     Dosage: 160 MG, OTHER
     Route: 058
     Dates: start: 20180801, end: 20180801

REACTIONS (5)
  - Dizziness [Unknown]
  - Pulmonary tuberculosis [Not Recovered/Not Resolved]
  - Malaise [Unknown]
  - Pneumonia [Recovered/Resolved]
  - Pyrexia [Unknown]

NARRATIVE: CASE EVENT DATE: 20181126
